FAERS Safety Report 12911282 (Version 2)
Quarter: 2017Q2

REPORT INFORMATION
  Report Type: Spontaneous
  Country: NO (occurrence: NO)
  Receive Date: 20161104
  Receipt Date: 20170515
  Transmission Date: 20170830
  Serious: Yes (Life-Threatening, Hospitalization, Other)
  Sender: FDA-Public Use
  Company Number: NO-PFIZER INC-2016509399

PATIENT
  Sex: Male

DRUGS (9)
  1. SENDOXAN 1000 MG POWDER FOR INJECTION FLUID, SOLUTION [Suspect]
     Active Substance: CYCLOPHOSPHAMIDE
     Indication: DISEASE RECURRENCE
     Dosage: UNK, DAILY
     Dates: start: 20150826
  2. SENDOXAN 1000 MG POWDER FOR INJECTION FLUID, SOLUTION [Suspect]
     Active Substance: CYCLOPHOSPHAMIDE
     Indication: AUTOIMMUNE HAEMOLYTIC ANAEMIA
     Dosage: HIGH DOSES
     Route: 042
     Dates: start: 20150827
  3. RITUXIMAB [Suspect]
     Active Substance: RITUXIMAB
     Indication: DISEASE RECURRENCE
     Dosage: UNK
     Route: 065
     Dates: start: 201412, end: 201501
  4. ENDOXAN [Suspect]
     Active Substance: CYCLOPHOSPHAMIDE
     Indication: DISEASE RECURRENCE
     Dosage: HIGH DOSE
     Route: 042
  5. METHYLPREDNISOLONE SODIUM SUCCINATE. [Suspect]
     Active Substance: METHYLPREDNISOLONE SODIUM SUCCINATE
     Indication: ANAEMIA
     Dosage: HIGH DOSES
     Route: 042
     Dates: start: 201508
  6. ENDOXAN [Suspect]
     Active Substance: CYCLOPHOSPHAMIDE
     Indication: AUTOIMMUNE HAEMOLYTIC ANAEMIA
     Dosage: 2 MG/KG
     Route: 048
     Dates: start: 201503
  7. OCTAGAM IMMUNE GLOBULIN (HUMAN) [Suspect]
     Active Substance: HUMAN IMMUNOGLOBULIN G
     Indication: ANAEMIA
     Dosage: HIGH DOSES
     Route: 042
     Dates: start: 201508
  8. PREDNISONE. [Suspect]
     Active Substance: PREDNISONE
     Indication: CARDIAC SARCOIDOSIS
     Dosage: 30 MG, 2X/DAY
     Route: 065
     Dates: start: 201508
  9. RITUXIMAB [Suspect]
     Active Substance: RITUXIMAB
     Indication: AUTOIMMUNE HAEMOLYTIC ANAEMIA

REACTIONS (7)
  - Anaemia [Recovering/Resolving]
  - Muscle spasms [Unknown]
  - Pericardial effusion [Unknown]
  - Cardiac sarcoidosis [Unknown]
  - Tremor [Unknown]
  - Memory impairment [Unknown]
  - Hypogammaglobulinaemia [Recovered/Resolved]

NARRATIVE: CASE EVENT DATE: 2015
